FAERS Safety Report 9626390 (Version 1)
Quarter: 2013Q4

REPORT INFORMATION
  Report Type: Spontaneous
  Country: US (occurrence: US)
  Receive Date: 20131016
  Receipt Date: 20131016
  Transmission Date: 20140711
  Serious: No
  Sender: FDA-Public Use
  Company Number: US-BAYER-2013-124730

PATIENT
  Sex: Female

DRUGS (2)
  1. MIDOL EXTENDED RELIEF CAPLET [Suspect]
     Indication: DYSMENORRHOEA
  2. ALEVE CAPLET [Suspect]
     Indication: DYSMENORRHOEA

REACTIONS (1)
  - Drug ineffective [None]
